FAERS Safety Report 11695638 (Version 2)
Quarter: 2015Q4

REPORT INFORMATION
  Report Type: Spontaneous
  Country: FR (occurrence: FR)
  Receive Date: 20151104
  Receipt Date: 20151109
  Transmission Date: 20160304
  Serious: Yes (Other)
  Sender: FDA-Public Use
  Company Number: FR-SUN PHARMACEUTICAL INDUSTRIES LTD-2015RR-105458

PATIENT

DRUGS (1)
  1. AMOXICILLINE/ACIDE CLAVULANIQUE [Suspect]
     Active Substance: AMOXICILLIN\CLAVULANIC ACID
     Indication: PRODUCT USED FOR UNKNOWN INDICATION
     Dosage: 1 DF, DAILY
     Route: 065

REACTIONS (2)
  - Anaphylactic shock [Unknown]
  - Product substitution issue [Unknown]

NARRATIVE: CASE EVENT DATE: 20151021
